FAERS Safety Report 6262850-9 (Version None)
Quarter: 2009Q3

REPORT INFORMATION
  Report Type: 
  Country: None (occurrence: None)
  Receive Date: 20090708
  Receipt Date: 20090630
  Transmission Date: 20100115
  Serious: Yes (Other)
  Sender: FDA-Public Use
  Company Number: CHPA2009US14478

PATIENT
  Age: 61 Year
  Sex: Male
  Weight: 99.8 kg

DRUGS (1)
  1. TRANSDERM SCOP [Suspect]
     Dosage: 1.5 MG, Q72H, TRANSDERMAL
     Route: 062
     Dates: start: 20090619, end: 20090627

REACTIONS (3)
  - DIZZINESS [None]
  - HYPERTENSION [None]
  - NAUSEA [None]
